FAERS Safety Report 24832059 (Version 1)
Quarter: 2025Q1

REPORT INFORMATION
  Report Type: Spontaneous
  Country: FR (occurrence: FR)
  Receive Date: 20250110
  Receipt Date: 20250110
  Transmission Date: 20250408
  Serious: Yes (Hospitalization)
  Sender: MYLAN
  Company Number: None

PATIENT
  Age: 15 Year
  Sex: Male
  Weight: 104 kg

DRUGS (5)
  1. ACYCLOVIR [Suspect]
     Active Substance: ACYCLOVIR
     Indication: Sinusitis
     Dosage: 1 GRAM, QD, 1000MG TO PASS OVER 1H30 X1/DAY IV AT 10 P.M.,
     Route: 042
     Dates: end: 20240930
  2. ACYCLOVIR [Suspect]
     Active Substance: ACYCLOVIR
     Dosage: 3 GRAM, QD, 1000MG TO PASS OVER 1H30X3/DAY IV AT 5AM 1 P.M. AND 9 P.M
     Route: 042
     Dates: start: 20240927, end: 20240929
  3. CEFOTAXIME [Suspect]
     Active Substance: CEFOTAXIME SODIUM
     Indication: Sinusitis
     Dosage: 8 GRAM, QD, 2GX4/24H
     Route: 042
     Dates: end: 20241009
  4. METRONIDAZOLE [Concomitant]
     Active Substance: METRONIDAZOLE
     Indication: Sinusitis
     Dosage: 500 MILLIGRAM, TID
     Route: 042
     Dates: start: 20240929, end: 20241009
  5. NALBUPHINE HYDROCHLORIDE [Concomitant]
     Active Substance: NALBUPHINE HYDROCHLORIDE
     Indication: Pain
     Dosage: 21 MILLIGRAM, QD, 20.8MG IVL TO PASS IN 20 MINUTES IF NECESSARY FOR 3 DAYS)
     Route: 042
     Dates: start: 20240926, end: 20240929

REACTIONS (3)
  - Acute kidney injury [Recovered/Resolved]
  - Drug level above therapeutic [Recovered/Resolved]
  - Product prescribing error [Recovered/Resolved]

NARRATIVE: CASE EVENT DATE: 20240928
